FAERS Safety Report 10612530 (Version 1)
Quarter: 2014Q4

REPORT INFORMATION
  Report Type: Spontaneous
  Country: US (occurrence: US)
  Receive Date: 20141127
  Receipt Date: 20141127
  Transmission Date: 20150529
  Serious: No
  Sender: FDA-Public Use
  Company Number: US-BIOGENIDEC-2014BI122807

PATIENT
  Sex: Female

DRUGS (1)
  1. TECFIDERA [Suspect]
     Active Substance: DIMETHYL FUMARATE
     Indication: PRODUCT USED FOR UNKNOWN INDICATION

REACTIONS (10)
  - Musculoskeletal disorder [Not Recovered/Not Resolved]
  - Hypoaesthesia [Unknown]
  - Headache [Unknown]
  - Abdominal pain upper [Unknown]
  - Upper limb fracture [Unknown]
  - Hypophagia [Unknown]
  - Diarrhoea [Unknown]
  - Intervertebral disc protrusion [Recovered/Resolved]
  - Paraesthesia [Unknown]
  - Fall [Unknown]
